FAERS Safety Report 9196086 (Version 3)
Quarter: 2014Q1

REPORT INFORMATION
  Report Type: Spontaneous
  Country: US (occurrence: None)
  Receive Date: 20120703
  Receipt Date: 20130107
  Transmission Date: 20141002
  Serious: No
  Sender: FDA-Public Use
  Company Number: PHEH2012US005514

PATIENT
  Age: 34 Year
  Sex: Female

DRUGS (1)
  1. GILENYA (FTY) [Suspect]
     Indication: MULTIPLE SCLEROSIS
     Route: 048
     Dates: start: 20111104

REACTIONS (6)
  - Nasal congestion [None]
  - Hypersensitivity [None]
  - Nasopharyngitis [None]
  - Oropharyngeal pain [None]
  - Cough [None]
  - Seasonal allergy [None]
